FAERS Safety Report 9887203 (Version 1)
Quarter: 2014Q1

REPORT INFORMATION
  Report Type: Spontaneous
  Country: US (occurrence: US)
  Receive Date: 20140211
  Receipt Date: 20140211
  Transmission Date: 20141002
  Serious: No
  Sender: FDA-Public Use
  Company Number: US-BIOGENIDEC-2014BI009793

PATIENT
  Sex: Female

DRUGS (7)
  1. TECFIDERA [Suspect]
     Indication: MULTIPLE SCLEROSIS
     Route: 048
     Dates: start: 20131030, end: 20131105
  2. TECFIDERA [Suspect]
     Indication: MULTIPLE SCLEROSIS
     Route: 048
     Dates: start: 20131106
  3. PRO AIR [Concomitant]
  4. PROVIGIL [Concomitant]
  5. CLARITIN [Concomitant]
  6. FLONASE [Concomitant]
  7. ZOLOFT [Concomitant]

REACTIONS (1)
  - Wound [Not Recovered/Not Resolved]
